FAERS Safety Report 12507919 (Version 3)
Quarter: 2016Q3

REPORT INFORMATION
  Report Type: Report from Study
  Country: US (occurrence: US)
  Receive Date: 20160629
  Receipt Date: 20160725
  Transmission Date: 20161109
  Serious: No
  Sender: FDA-Public Use
  Company Number: US-009507513-1606USA008665

PATIENT
  Age: 72 Year
  Sex: Male

DRUGS (3)
  1. TEMODAR [Suspect]
     Active Substance: TEMOZOLOMIDE
     Indication: PLEOMORPHIC LIPOSARCOMA
     Dosage: UNK
     Route: 048
     Dates: start: 20160418, end: 2016
  2. YONDELIS [Concomitant]
     Active Substance: TRABECTEDIN
  3. LOVENOX [Concomitant]
     Active Substance: ENOXAPARIN SODIUM

REACTIONS (4)
  - Product use issue [Unknown]
  - Seroma [Not Recovered/Not Resolved]
  - Disease progression [Unknown]
  - Chest wall mass [Not Recovered/Not Resolved]

NARRATIVE: CASE EVENT DATE: 20160418
